FAERS Safety Report 8449011-X (Version None)
Quarter: 2012Q2

REPORT INFORMATION
  Report Type: 
  Country: None (occurrence: None)
  Receive Date: 20120619
  Receipt Date: 20120619
  Transmission Date: 20120825
  Serious: Yes (Death)
  Sender: FDA-Public Use
  Company Number: PHHY2012IL052108

PATIENT
  Age: 9 Year
  Sex: Female

DRUGS (7)
  1. AZATHIOPRINE [Concomitant]
  2. CYCLOSPORINE [Suspect]
     Indication: RENAL TRANSPLANT
  3. PREDNISONE [Concomitant]
  4. DEXAMETHASONE [Concomitant]
  5. CYCLOPHOSPHAMIDE [Concomitant]
     Indication: RENAL TRANSPLANT
  6. VINCRISTINE SULFATE [Concomitant]
     Indication: RENAL TRANSPLANT
  7. DAUNORUBICIN HCL [Concomitant]
     Indication: RENAL TRANSPLANT

REACTIONS (3)
  - ABDOMINAL PAIN [None]
  - POST TRANSPLANT LYMPHOPROLIFERATIVE DISORDER [None]
  - WEIGHT DECREASED [None]
